FAERS Safety Report 24629227 (Version 1)
Quarter: 2024Q4

REPORT INFORMATION
  Report Type: Spontaneous
  Country: DE (occurrence: DE)
  Receive Date: 20241118
  Receipt Date: 20241118
  Transmission Date: 20250115
  Serious: Yes (Other)
  Sender: EMD SERONO INC
  Company Number: None

PATIENT
  Age: 39 Year
  Sex: Female
  Weight: 64 kg

DRUGS (1)
  1. CHORIOGONADOTROPIN ALFA [Suspect]
     Active Substance: CHORIOGONADOTROPIN ALFA
     Indication: Ovulation induction
     Dosage: OVITRELLE 250 MG/0.5 ML?IN ABDOMINAL WALL (FOLD OF FAT)
     Dates: start: 20240209

REACTIONS (4)
  - Removal of foreign body [Recovered/Resolved]
  - Foreign body in skin or subcutaneous tissue [Recovered/Resolved]
  - Needle issue [Recovered/Resolved]
  - Therapy interrupted [Unknown]

NARRATIVE: CASE EVENT DATE: 20240209
